FAERS Safety Report 15609015 (Version 3)
Quarter: 2019Q4

REPORT INFORMATION
  Report Type: Spontaneous
  Country: JP (occurrence: JP)
  Receive Date: 20181112
  Receipt Date: 20191122
  Transmission Date: 20200122
  Serious: Yes (Death)
  Sender: FDA-Public Use
  Company Number: JP-ABBVIE-18P-087-2551293-00

PATIENT
  Age: 59 Year
  Sex: Male

DRUGS (2)
  1. GLECAPREVIR/PIBRENTASVIR [Suspect]
     Active Substance: GLECAPREVIR\PIBRENTASVIR
     Indication: HEPATITIS CHOLESTATIC
     Route: 048
  2. GLECAPREVIR/PIBRENTASVIR [Suspect]
     Active Substance: GLECAPREVIR\PIBRENTASVIR
     Indication: HEPATIC FIBROSIS

REACTIONS (6)
  - Haemorrhagic cerebral infarction [Fatal]
  - Hepatic fibrosis [Fatal]
  - Hepatitis cholestatic [Fatal]
  - Gastric ulcer haemorrhage [Fatal]
  - Hepatic failure [Fatal]
  - Hepatitis C [Fatal]
